FAERS Safety Report 15264645 (Version 2)
Quarter: 2018Q3

REPORT INFORMATION
  Report Type: Spontaneous
  Country: US (occurrence: US)
  Receive Date: 20180810
  Receipt Date: 20180911
  Transmission Date: 20181010
  Serious: No
  Sender: FDA-Public Use
  Company Number: US-ASTRAZENECA-2018SE97636

PATIENT
  Age: 781 Month
  Sex: Female
  Weight: 79.8 kg

DRUGS (1)
  1. BYDUREON BCISE [Suspect]
     Active Substance: EXENATIDE
     Indication: DIABETES MELLITUS
     Route: 058
     Dates: start: 201801

REACTIONS (3)
  - Injection site pain [Recovered/Resolved]
  - Device malfunction [Unknown]
  - Injection site mass [Recovering/Resolving]

NARRATIVE: CASE EVENT DATE: 201801
